FAERS Safety Report 17436829 (Version 3)
Quarter: 2020Q4

REPORT INFORMATION
  Report Type: Spontaneous
  Country: US (occurrence: US)
  Receive Date: 20200219
  Receipt Date: 20201111
  Transmission Date: 20210113
  Serious: No
  Sender: FDA-Public Use
  Company Number: US-SHIRE-US202006416

PATIENT
  Sex: Male

DRUGS (1)
  1. ELAPRASE [Suspect]
     Active Substance: IDURSULFASE
     Indication: MUCOPOLYSACCHARIDOSIS II
     Dosage: 12 UNITS, 1X/WEEK
     Route: 042
     Dates: start: 20110607

REACTIONS (2)
  - Exposure to SARS-CoV-2 [Recovering/Resolving]
  - Hypersensitivity [Recovering/Resolving]
